FAERS Safety Report 6266343-4 (Version None)
Quarter: 2009Q3

REPORT INFORMATION
  Report Type: 
  Country: None (occurrence: None)
  Receive Date: 20090713
  Receipt Date: 20090706
  Transmission Date: 20100115
  Serious: Yes (Hospitalization)
  Sender: FDA-Public Use
  Company Number: US-ELI_LILLY_AND_COMPANY-US200907000904

PATIENT
  Sex: Male
  Weight: 102.49 kg

DRUGS (8)
  1. BYETTA [Suspect]
     Indication: TYPE 2 DIABETES MELLITUS
     Dosage: 5 UG, 2/D
     Route: 058
     Dates: start: 20080101
  2. BYETTA [Suspect]
     Dosage: 10 UG, 2/D
     Route: 058
     Dates: start: 20090101
  3. METFORMIN HCL [Concomitant]
     Indication: TYPE 2 DIABETES MELLITUS
     Dosage: 2000 MG, EACH MORNING
     Route: 048
  4. METFORMIN HCL [Concomitant]
     Dosage: 2000 MG, EACH EVENING
     Route: 048
  5. METOPROLOL TARTRATE [Concomitant]
  6. ATACAND [Concomitant]
  7. SIMVASTATIN [Concomitant]
  8. DETROL /01350201/ [Concomitant]

REACTIONS (3)
  - ABDOMINAL PAIN [None]
  - GALLBLADDER DISORDER [None]
  - NON-CARDIAC CHEST PAIN [None]
